FAERS Safety Report 11500660 (Version 1)
Quarter: 2015Q3

REPORT INFORMATION
  Report Type: Spontaneous
  Country: US (occurrence: None)
  Receive Date: 20150911
  Receipt Date: 20150911
  Transmission Date: 20151125
  Serious: Yes (Other)
  Sender: FDA-Public Use
  Company Number: None

PATIENT
  Sex: Female
  Weight: 75.3 kg

DRUGS (1)
  1. BUPROPION. [Suspect]
     Active Substance: BUPROPION
     Indication: DEPRESSION
     Dosage: 4-5 MONTHS, 150 MG 1 PO QAM, 1 PO QPM
     Route: 048

REACTIONS (4)
  - Product substitution issue [None]
  - Drug ineffective [None]
  - General symptom [None]
  - Condition aggravated [None]
